FAERS Safety Report 11186900 (Version 1)
Quarter: 2015Q2

REPORT INFORMATION
  Report Type: Spontaneous
  Country: US (occurrence: US)
  Receive Date: 20150614
  Receipt Date: 20150614
  Transmission Date: 20150821
  Serious: Yes (Death, Other)
  Sender: FDA-Public Use
  Company Number: US-009507513-1506USA004119

PATIENT
  Age: 3 Year
  Sex: Female

DRUGS (5)
  1. ORGATRAX [Suspect]
     Active Substance: HYDROXYZINE HYDROCHLORIDE
     Indication: SEDATION
     Dosage: UNK
     Dates: start: 201312
  2. EPINEPHRINE (+) LIDOCAINE HYDROCHLORIDE [Suspect]
     Active Substance: EPINEPHRINE\LIDOCAINE HYDROCHLORIDE
     Indication: LOCAL ANAESTHESIA
     Dosage: UNK
     Dates: start: 201312
  3. MEPERIDINE HYDROCHLORIDE. [Suspect]
     Active Substance: MEPERIDINE HYDROCHLORIDE
     Indication: SEDATION
     Dosage: UNK
     Dates: start: 201312
  4. CHLORAL HYDRATE [Suspect]
     Active Substance: CHLORAL HYDRATE
     Indication: SEDATION
     Dosage: UNK
     Dates: start: 201312
  5. NITROUS OXIDE. [Suspect]
     Active Substance: NITROUS OXIDE
     Indication: SEDATION
     Dosage: UNK
     Dates: start: 201312

REACTIONS (2)
  - Cardio-respiratory arrest [Fatal]
  - Loss of consciousness [Fatal]

NARRATIVE: CASE EVENT DATE: 201312
